FAERS Safety Report 25548853 (Version 1)
Quarter: 2025Q3

REPORT INFORMATION
  Report Type: Spontaneous
  Country: US (occurrence: US)
  Receive Date: 20250714
  Receipt Date: 20250714
  Transmission Date: 20251021
  Serious: Yes (Other)
  Sender: GLENMARK
  Company Number: US-MLMSERVICE-20250626-PI552786-00320-1

PATIENT
  Age: 38 Year
  Sex: Female

DRUGS (2)
  1. TOPIRAMATE [Suspect]
     Active Substance: TOPIRAMATE
     Indication: Migraine
     Dosage: UNK, QD (ON THE DAY PRIOR TO PRESENTATION, SHE REPORTED INCREASING HER DOSE AS PRESCRIBED BY HER PHY
     Route: 065
  2. TOPIRAMATE [Suspect]
     Active Substance: TOPIRAMATE
     Dosage: UNK, BID (ON THE DAY PRIOR TO PRESENTATION, SHE REPORTED INCREASING HER DOSE AS PRESCRIBED BY HER PH
     Route: 065

REACTIONS (1)
  - Myopia [Recovering/Resolving]
